FAERS Safety Report 18283088 (Version 1)
Quarter: 2020Q3

REPORT INFORMATION
  Report Type: Report from Study
  Country: NO (occurrence: NO)
  Receive Date: 20200918
  Receipt Date: 20200918
  Transmission Date: 20201103
  Serious: Yes (Other)
  Sender: FDA-Public Use
  Company Number: NO-BAYER-2020-197472

PATIENT
  Age: 47 Year
  Sex: Female

DRUGS (2)
  1. MIRENA [Suspect]
     Active Substance: LEVONORGESTREL
     Dosage: 20 ?G PER DAY CONTINOUSLY
     Route: 015
     Dates: start: 202009, end: 202009
  2. MIRENA [Suspect]
     Active Substance: LEVONORGESTREL
     Dosage: 20 ?G PER DAY CONTINOUSLY
     Route: 015
     Dates: start: 201310, end: 202009

REACTIONS (4)
  - Device breakage [None]
  - Device use issue [None]
  - Complication of device removal [None]
  - Complication of device insertion [None]

NARRATIVE: CASE EVENT DATE: 201910
